FAERS Safety Report 16809963 (Version 1)
Quarter: 2019Q3

REPORT INFORMATION
  Report Type: Report from Study
  Country: FR (occurrence: FR)
  Receive Date: 20190916
  Receipt Date: 20190916
  Transmission Date: 20191005
  Serious: Yes (Other)
  Sender: FDA-Public Use
  Company Number: FR-MYLANLABS-2019M1085407

PATIENT
  Age: 49 Year
  Sex: Male
  Weight: 74 kg

DRUGS (9)
  1. DIFFERINE [Concomitant]
     Dosage: UNK
     Dates: start: 20180312
  2. ATORVASTATINE                      /01326102/ [Concomitant]
     Active Substance: ATORVASTATIN CALCIUM
     Dosage: UNK
     Dates: start: 20160701
  3. ATORVASTATINE                      /01326102/ [Concomitant]
     Active Substance: ATORVASTATIN CALCIUM
     Dosage: UNK
     Dates: start: 20170228
  4. METHOTREXATE. [Suspect]
     Active Substance: METHOTREXATE
     Dosage: 15 MILLIGRAM, QW
     Route: 048
     Dates: start: 20180312, end: 20190401
  5. ACETYLSALICYLATE LYSINE W/ACETYLSALICYLIC ACI [Concomitant]
     Dosage: UNK
     Dates: start: 20160701
  6. FOLIC ACID. [Concomitant]
     Active Substance: FOLIC ACID
     Dosage: 5 MILLIGRAM, QW
     Route: 048
     Dates: start: 20140602
  7. METHOTREXATE. [Suspect]
     Active Substance: METHOTREXATE
     Indication: PSORIASIS
     Dosage: 10 MILLIGRAM, QW
     Route: 048
     Dates: start: 20140602, end: 20180312
  8. DAIVOBET [Concomitant]
     Active Substance: BETAMETHASONE DIPROPIONATE\CALCIPOTRIENE
     Dosage: UNK
     Dates: start: 20141007
  9. DIPROSONE [Concomitant]
     Active Substance: BETAMETHASONE DIPROPIONATE
     Dosage: UNK
     Dates: start: 2014

REACTIONS (3)
  - Retinal vein occlusion [Not Recovered/Not Resolved]
  - Carotid artery stenosis [Not Recovered/Not Resolved]
  - Oral herpes [Not Recovered/Not Resolved]

NARRATIVE: CASE EVENT DATE: 201903
